FAERS Safety Report 25988275 (Version 1)
Quarter: 2025Q4

REPORT INFORMATION
  Report Type: Report from Study
  Country: US (occurrence: US)
  Receive Date: 20251103
  Receipt Date: 20251103
  Transmission Date: 20260117
  Serious: Yes (Hospitalization)
  Sender: ALEXION PHARMACEUTICALS
  Company Number: US-AstraZeneca-CH-00980207A

PATIENT
  Sex: Male
  Weight: 104 kg

DRUGS (17)
  1. ACALABRUTINIB [Suspect]
     Active Substance: ACALABRUTINIB
     Indication: Mantle cell lymphoma
     Dosage: 100 MILLIGRAM, BID
     Dates: start: 20250915
  2. ALLOPURINOL [Concomitant]
     Active Substance: ALLOPURINOL
     Route: 065
  3. ASPIRIN [Concomitant]
     Active Substance: ASPIRIN
     Route: 065
  4. ATORVASTATIN [Concomitant]
     Active Substance: ATORVASTATIN
     Route: 065
  5. BENDAMUSTINE [Concomitant]
     Active Substance: BENDAMUSTINE
     Route: 065
  6. BUMETANIDE [Concomitant]
     Active Substance: BUMETANIDE
     Route: 065
  7. CETIRIZINE [Concomitant]
     Active Substance: CETIRIZINE HYDROCHLORIDE
     Route: 065
  8. FOLIC ACID [Concomitant]
     Active Substance: FOLIC ACID
     Route: 065
  9. LEVOTHYROXINE [Concomitant]
     Active Substance: LEVOTHYROXINE
     Route: 065
  10. METOPROLOL TARTRATE [Concomitant]
     Active Substance: METOPROLOL TARTRATE
     Route: 065
  11. MIDODRINE [Concomitant]
     Active Substance: MIDODRINE
     Route: 065
  12. PANTOPRAZOLE [Concomitant]
     Active Substance: PANTOPRAZOLE
     Route: 065
  13. RITUXAN [Concomitant]
     Active Substance: RITUXIMAB
     Route: 065
  14. SENNA [Concomitant]
     Active Substance: SENNOSIDES
     Route: 065
  15. TAMSULOSIN [Concomitant]
     Active Substance: TAMSULOSIN
     Route: 065
  16. TRAMADOL [Concomitant]
     Active Substance: TRAMADOL
     Route: 065
  17. VITAMIN B1 [Concomitant]
     Active Substance: THIAMINE HYDROCHLORIDE
     Route: 065

REACTIONS (2)
  - Infectious pleural effusion [Not Recovered/Not Resolved]
  - Cardiac failure congestive [Not Recovered/Not Resolved]
